FAERS Safety Report 22084610 (Version 9)
Quarter: 2025Q1

REPORT INFORMATION
  Report Type: Spontaneous
  Country: US (occurrence: US)
  Receive Date: 20230310
  Receipt Date: 20250327
  Transmission Date: 20250409
  Serious: Yes (Other)
  Sender: PFIZER
  Company Number: US-PFIZER INC-PV202200081715

PATIENT
  Age: 72 Year
  Sex: Female
  Weight: 62.6 kg

DRUGS (15)
  1. IBRANCE [Suspect]
     Active Substance: PALBOCICLIB
     Indication: Breast cancer stage IV
     Route: 048
     Dates: start: 20190729
  2. IBRANCE [Suspect]
     Active Substance: PALBOCICLIB
     Indication: Breast cancer female
     Route: 048
  3. IBRANCE [Suspect]
     Active Substance: PALBOCICLIB
     Indication: Hormone receptor positive breast cancer
     Route: 048
  4. IBRANCE [Suspect]
     Active Substance: PALBOCICLIB
     Indication: Lung neoplasm malignant
     Route: 048
     Dates: start: 20200909
  5. IBRANCE [Suspect]
     Active Substance: PALBOCICLIB
     Route: 048
     Dates: start: 20230301
  6. ANASTROZOLE [Concomitant]
     Active Substance: ANASTROZOLE
     Indication: Breast cancer female
     Dates: start: 20190729
  7. ANASTROZOLE [Concomitant]
     Active Substance: ANASTROZOLE
     Indication: Lung neoplasm malignant
  8. ANASTROZOLE [Concomitant]
     Active Substance: ANASTROZOLE
     Indication: Hormone receptor positive breast cancer
  9. AROMASIN [Concomitant]
     Active Substance: EXEMESTANE
     Dosage: 25 MG, 1X/DAY (AFTER MEAL)
     Route: 048
  10. EXEMESTANE [Concomitant]
     Active Substance: EXEMESTANE
     Indication: Breast cancer female
  11. EXEMESTANE [Concomitant]
     Active Substance: EXEMESTANE
     Indication: Lung neoplasm malignant
  12. EXEMESTANE [Concomitant]
     Active Substance: EXEMESTANE
     Indication: Hormone receptor positive breast cancer
  13. LETROZOLE [Concomitant]
     Active Substance: LETROZOLE
     Indication: Breast cancer female
     Dosage: 2.5 MG, 1X/DAY (STOPPED)
     Route: 048
     Dates: start: 20190729
  14. LETROZOLE [Concomitant]
     Active Substance: LETROZOLE
     Indication: Lung neoplasm malignant
  15. LETROZOLE [Concomitant]
     Active Substance: LETROZOLE
     Indication: Hormone receptor positive breast cancer

REACTIONS (5)
  - Neutropenia [Not Recovered/Not Resolved]
  - Nasopharyngitis [Unknown]
  - Platelet count decreased [Unknown]
  - White blood cell count decreased [Unknown]
  - Lymphoedema [Not Recovered/Not Resolved]

NARRATIVE: CASE EVENT DATE: 20200101
